FAERS Safety Report 14177015 (Version 1)
Quarter: 2017Q4

REPORT INFORMATION
  Report Type: Spontaneous
  Country: US (occurrence: US)
  Receive Date: 20171110
  Receipt Date: 20171110
  Transmission Date: 20180321
  Serious: Yes (Disabling)
  Sender: FDA-Public Use
  Company Number: None

PATIENT
  Age: 38 Year
  Sex: Female
  Weight: 58.95 kg

DRUGS (8)
  1. LUPRON [Suspect]
     Active Substance: LEUPROLIDE ACETATE
     Indication: IN VITRO FERTILISATION
     Dosage: ?          OTHER ROUTE:SUBCUTANEOUS INJECTION?
     Route: 058
  2. LYSINE [Concomitant]
     Active Substance: LYSINE
  3. MELATONIN [Concomitant]
     Active Substance: MELATONIN
  4. TYLENOL [Concomitant]
     Active Substance: ACETAMINOPHEN
  5. PRENATAL VITAMIN [Concomitant]
     Active Substance: VITAMINS
  6. COQ10 [Concomitant]
     Active Substance: UBIDECARENONE
  7. CALCIUM [Concomitant]
     Active Substance: CALCIUM
  8. DHEA [Concomitant]
     Active Substance: PRASTERONE

REACTIONS (5)
  - Arthralgia [None]
  - Dyspnoea [None]
  - Crying [None]
  - Muscle spasms [None]
  - Back pain [None]

NARRATIVE: CASE EVENT DATE: 20171022
